FAERS Safety Report 25762849 (Version 1)
Quarter: 2025Q3

REPORT INFORMATION
  Report Type: Spontaneous
  Country: US (occurrence: US)
  Receive Date: 20250904
  Receipt Date: 20250904
  Transmission Date: 20251020
  Serious: No
  Sender: BRACCO
  Company Number: US-BRACCO-2020US03489

PATIENT
  Sex: Male

DRUGS (2)
  1. AXUMIN [Suspect]
     Active Substance: FLUCICLOVINE F-18
     Indication: Positron emission tomogram
     Route: 042
     Dates: start: 20200810, end: 20200810
  2. SALINE                             /00075401/ [Concomitant]
     Route: 042
     Dates: start: 20200810, end: 20200810

REACTIONS (1)
  - Therapeutic product effect decreased [Unknown]

NARRATIVE: CASE EVENT DATE: 20200810
